FAERS Safety Report 14909923 (Version 1)
Quarter: 2018Q2

REPORT INFORMATION
  Report Type: Report from Study
  Country: CA (occurrence: CA)
  Receive Date: 20180517
  Receipt Date: 20180517
  Transmission Date: 20180711
  Serious: Yes (Hospitalization)
  Sender: FDA-Public Use
  Company Number: CA-HLSUS-2018-CA-000640

PATIENT
  Age: 25 Year
  Sex: Male

DRUGS (1)
  1. CLOZARIL [Suspect]
     Active Substance: CLOZAPINE
     Route: 048
     Dates: start: 20180310, end: 20180313

REACTIONS (10)
  - Rhabdomyolysis [Unknown]
  - Pneumonia aspiration [Unknown]
  - Acute kidney injury [Unknown]
  - Altered state of consciousness [Unknown]
  - Acute respiratory distress syndrome [Unknown]
  - Neuroleptic malignant syndrome [Unknown]
  - Pancreatitis [Unknown]
  - Pancreatic pseudocyst [Unknown]
  - Oesophagitis [Unknown]
  - Rash maculo-papular [Unknown]

NARRATIVE: CASE EVENT DATE: 201803
